FAERS Safety Report 4697453-0 (Version None)
Quarter: 2005Q2

REPORT INFORMATION
  Report Type: 
  Country: None (occurrence: None)
  Receive Date: 20050621
  Receipt Date: 20050608
  Transmission Date: 20051028
  Serious: Yes (Hospitalization, Other)
  Sender: FDA-Public Use
  Company Number: USA0506100347

PATIENT
  Age: 85 Year
  Sex: Male
  Weight: 80 kg

DRUGS (1)
  1. FORTEO [Suspect]
     Indication: SPINAL FRACTURE
     Dosage: 20 UG DAY

REACTIONS (4)
  - BACK PAIN [None]
  - DRUG DOSE OMISSION [None]
  - LOCALISED INFECTION [None]
  - MEDICATION ERROR [None]
